FAERS Safety Report 6098849-5 (Version None)
Quarter: 2009Q1

REPORT INFORMATION
  Report Type: 
  Country: None (occurrence: None)
  Receive Date: 20090302
  Receipt Date: 20090225
  Transmission Date: 20090719
  Serious: Yes (Hospitalization)
  Sender: FDA-Public Use
  Company Number: A0770207A

PATIENT
  Age: 64 Year
  Sex: Female

DRUGS (3)
  1. ONDANSETRON [Suspect]
     Indication: NAUSEA
     Dosage: 8MG THREE TIMES PER DAY
     Route: 048
     Dates: start: 20070101
  2. ALDACTONE [Concomitant]
  3. COREG [Concomitant]

REACTIONS (4)
  - DYSGEUSIA [None]
  - KIDNEY INFECTION [None]
  - NAUSEA [None]
  - VOMITING [None]
